FAERS Safety Report 10424542 (Version 2)
Quarter: 2014Q3

REPORT INFORMATION
  Report Type: Report from Study
  Country: US (occurrence: US)
  Receive Date: 20140902
  Receipt Date: 20140902
  Transmission Date: 20150326
  Serious: Yes (Hospitalization, Other)
  Sender: FDA-Public Use
  Company Number: PHEH2014US014658

PATIENT
  Age: 42 Year
  Sex: Female
  Weight: 82.99 kg

DRUGS (9)
  1. TASIGNA [Suspect]
     Active Substance: NILOTINIB
     Indication: CHRONIC MYELOID LEUKAEMIA
     Dosage: 150 MG, BID
     Route: 048
     Dates: start: 20140409, end: 20140618
  2. AMOXICILLIN. [Concomitant]
     Active Substance: AMOXICILLIN
     Dosage: 1 DF, TID
     Route: 048
  3. DEXAMETHASONE. [Concomitant]
     Active Substance: DEXAMETHASONE
  4. CEPHALEXIN. [Concomitant]
     Active Substance: CEPHALEXIN
     Dosage: 1 DF, TID FOR 10 DAYS
  5. CEFTRIAXONE. [Concomitant]
     Active Substance: CEFTRIAXONE
  6. TRAMADOL [Concomitant]
     Active Substance: TRAMADOL
     Dosage: 1-2 DF FOR PAIN PRN
  7. CLINDAMYCIN [Concomitant]
     Active Substance: CLINDAMYCIN\CLINDAMYCIN PHOSPHATE
  8. TASIGNA [Suspect]
     Active Substance: NILOTINIB
     Dosage: 150 MG, BID
     Route: 048
     Dates: start: 20140716
  9. FLUCONAZOLE. [Concomitant]
     Active Substance: FLUCONAZOLE
     Dosage: 2 DF ON 23 MAY, 30 MAY AND 06 JUN

REACTIONS (10)
  - Throat tightness [Unknown]
  - Respiratory distress [Unknown]
  - Epiglottitis [Unknown]
  - Dysphagia [Recovered/Resolved]
  - Insomnia [Unknown]
  - Chest pain [Recovered/Resolved]
  - Dry mouth [Recovered/Resolved]
  - Oral candidiasis [Recovered/Resolved]
  - Headache [Unknown]
  - Aspiration [Recovered/Resolved]

NARRATIVE: CASE EVENT DATE: 20140507
